FAERS Safety Report 13166632 (Version 1)
Quarter: 2017Q1

REPORT INFORMATION
  Report Type: Spontaneous
  Country: US (occurrence: US)
  Receive Date: 20170126
  Receipt Date: 20170126
  Transmission Date: 20170428
  Serious: Yes (Other)
  Sender: FDA-Public Use
  Company Number: None

PATIENT
  Age: 32 Year
  Sex: Female
  Weight: 53.1 kg

DRUGS (6)
  1. VIVITROL [Suspect]
     Active Substance: NALTREXONE
     Indication: DIARRHOEA
     Dosage: EVERY 15 MINS AS N;?
     Route: 048
     Dates: start: 20170101, end: 20170126
  2. VIVITROL [Suspect]
     Active Substance: NALTREXONE
     Indication: NAUSEA
     Dosage: EVERY 15 MINS AS N;?
     Route: 048
     Dates: start: 20170101, end: 20170126
  3. EMETROL [Suspect]
     Active Substance: DEXTROSE\FRUCTOSE\PHOSPHORIC ACID
     Indication: NAUSEA
     Dosage: EVERY 15 MINS AS N
     Route: 048
     Dates: start: 20170101, end: 20170126
  4. VIVITROL [Suspect]
     Active Substance: NALTREXONE
     Indication: VOMITING
     Dosage: EVERY 15 MINS AS N;?
     Route: 048
     Dates: start: 20170101, end: 20170126
  5. EMETROL [Suspect]
     Active Substance: DEXTROSE\FRUCTOSE\PHOSPHORIC ACID
     Indication: DIARRHOEA
     Dosage: EVERY 15 MINS AS N
     Route: 048
     Dates: start: 20170101, end: 20170126
  6. EMETROL [Suspect]
     Active Substance: DEXTROSE\FRUCTOSE\PHOSPHORIC ACID
     Indication: VOMITING
     Dosage: EVERY 15 MINS AS N
     Route: 048
     Dates: start: 20170101, end: 20170126

REACTIONS (4)
  - Legal problem [None]
  - Urine alcohol test positive [None]
  - Malaise [None]
  - Adverse drug reaction [None]

NARRATIVE: CASE EVENT DATE: 20170115
